FAERS Safety Report 6630298-0 (Version None)
Quarter: 2010Q1

REPORT INFORMATION
  Report Type: 
  Country: None (occurrence: None)
  Receive Date: 20100311
  Receipt Date: 20100304
  Transmission Date: 20100710
  Serious: Yes (Hospitalization)
  Sender: FDA-Public Use
  Company Number: PHHO2008DE04376

PATIENT
  Sex: Female
  Weight: 64 kg

DRUGS (5)
  1. CERTICAN [Suspect]
     Indication: LIVER TRANSPLANT
     Dosage: 3.5 MG /DAILY
     Route: 048
     Dates: start: 20080329, end: 20080813
  2. CERTICAN [Suspect]
     Dosage: 2.5
     Route: 048
  3. NEORAL [Concomitant]
     Indication: LIVER TRANSPLANT
     Dosage: 70 MG /DAILY
     Dates: start: 20080321
  4. TACROLIMUS [Concomitant]
     Indication: RENAL TRANSPLANT
     Dosage: UNK
     Dates: start: 20080715
  5. SIMULECT [Concomitant]
     Indication: LIVER TRANSPLANT

REACTIONS (3)
  - HEPATIC ENZYME INCREASED [None]
  - LIVER TRANSPLANT REJECTION [None]
  - TRANSPLANT FAILURE [None]
